FAERS Safety Report 5415873-3 (Version None)
Quarter: 2007Q3

REPORT INFORMATION
  Report Type: 
  Country: None (occurrence: None)
  Receive Date: 20070815
  Receipt Date: 20070807
  Transmission Date: 20080115
  Serious: No
  Sender: FDA-Public Use
  Company Number: US-BOEHRINGER INGELHEIM PHARMACEUTICALS, INC.-2007-BP-18722BP

PATIENT
  Sex: Female

DRUGS (1)
  1. ATROVENT HFA [Suspect]

REACTIONS (4)
  - GINGIVAL BLEEDING [None]
  - GINGIVAL PAIN [None]
  - STOMATITIS [None]
  - TONGUE DISORDER [None]
